FAERS Safety Report 23983409 (Version 1)
Quarter: 2024Q2

REPORT INFORMATION
  Report Type: Spontaneous
  Country: HR (occurrence: HR)
  Receive Date: 20240617
  Receipt Date: 20240617
  Transmission Date: 20240716
  Serious: Yes (Other)
  Sender: FDA-Public Use
  Company Number: HR-BAYER-2024A086969

PATIENT
  Age: 65 Year

DRUGS (8)
  1. XARELTO [Suspect]
     Active Substance: RIVAROXABAN
     Indication: Product used for unknown indication
     Dosage: 20 MG, QD
     Route: 048
  2. XARELTO [Suspect]
     Active Substance: RIVAROXABAN
     Dosage: 15 MG, QD
     Route: 048
  3. WARFARIN [Concomitant]
     Active Substance: WARFARIN
     Dosage: 4.5 MG, QD
  4. PERINDOPRIL ARG/AMLODIPINE FISHER [Concomitant]
  5. INSULINA [INSULIN NOS] [Concomitant]
  6. ALLOPURINOL [Concomitant]
     Active Substance: ALLOPURINOL
     Dosage: 100 MG
  7. VITAMIN K [Concomitant]
     Active Substance: PHYTONADIONE
     Dosage: 1 MG
     Route: 048
  8. BISOPROLOL FUMARATE [Concomitant]
     Active Substance: BISOPROLOL FUMARATE
     Dosage: 3.75 MG

REACTIONS (5)
  - Atrial fibrillation [Unknown]
  - International normalised ratio increased [Unknown]
  - Cardiac flutter [Unknown]
  - Discomfort [Unknown]
  - Respiratory fremitus [Unknown]

NARRATIVE: CASE EVENT DATE: 20240601
